FAERS Safety Report 18258849 (Version 3)
Quarter: 2021Q1

REPORT INFORMATION
  Report Type: Spontaneous
  Country: US (occurrence: US)
  Receive Date: 20200911
  Receipt Date: 20210211
  Transmission Date: 20210419
  Serious: Yes (Other)
  Sender: FDA-Public Use
  Company Number: US-GILEAD-2020-0494473

PATIENT
  Age: 66 Year
  Sex: Female
  Weight: 95.69 kg

DRUGS (94)
  1. ALBUTEROL HFA [Concomitant]
     Active Substance: ALBUTEROL SULFATE
  2. AMOXICILLIN. [Concomitant]
     Active Substance: AMOXICILLIN
  3. AVALIDE [Concomitant]
     Active Substance: HYDROCHLOROTHIAZIDE\IRBESARTAN
  4. CEFUROXIME. [Concomitant]
     Active Substance: CEFUROXIME
  5. CLINDAMYCIN. [Concomitant]
     Active Substance: CLINDAMYCIN
  6. DICYCLOMINE [Concomitant]
     Active Substance: DICYCLOMINE HYDROCHLORIDE
  7. HUMALOG [Concomitant]
     Active Substance: INSULIN LISPRO
  8. LIPITOR [Concomitant]
     Active Substance: ATORVASTATIN CALCIUM
  9. SUCRALFATE. [Concomitant]
     Active Substance: SUCRALFATE
  10. KALETRA [Concomitant]
     Active Substance: LOPINAVIR\RITONAVIR
  11. AMILORIDE [Concomitant]
     Active Substance: AMILORIDE
  12. AZITHROMYCIN ANHYDROUS. [Concomitant]
     Active Substance: AZITHROMYCIN ANHYDROUS
  13. BENZONATATE. [Concomitant]
     Active Substance: BENZONATATE
  14. DIVALPROEX [Concomitant]
     Active Substance: DIVALPROEX SODIUM
  15. FUROSEMIDE. [Concomitant]
     Active Substance: FUROSEMIDE
  16. NEXIUM 1?2?3 [Concomitant]
     Active Substance: AMOXICILLIN\CLARITHROMYCIN\ESOMEPRAZOLE
  17. OFLOXACIN. [Concomitant]
     Active Substance: OFLOXACIN
  18. PANTOPRAZOLE [Concomitant]
     Active Substance: PANTOPRAZOLE
  19. PREDNISONE. [Concomitant]
     Active Substance: PREDNISONE
  20. VENTOLIN HFA [Concomitant]
     Active Substance: ALBUTEROL SULFATE
  21. VIREAD [Suspect]
     Active Substance: TENOFOVIR DISOPROXIL FUMARATE
     Dosage: UNK
     Route: 048
     Dates: start: 20080506, end: 201206
  22. ALPRAZOLAM. [Concomitant]
     Active Substance: ALPRAZOLAM
  23. AMLODIPINE [Concomitant]
     Active Substance: AMLODIPINE BESYLATE
  24. CYPROHEPTADINE. [Concomitant]
     Active Substance: CYPROHEPTADINE
  25. GLIPIZIDE. [Concomitant]
     Active Substance: GLIPIZIDE
  26. LOSARTAN. [Concomitant]
     Active Substance: LOSARTAN
  27. METOPROLOL. [Concomitant]
     Active Substance: METOPROLOL
  28. NASONEX [Concomitant]
     Active Substance: MOMETASONE FUROATE
  29. ONDANSETRON [Concomitant]
     Active Substance: ONDANSETRON
  30. POTASSIUM CHLORIDE. [Concomitant]
     Active Substance: POTASSIUM CHLORIDE
  31. PREDNISOLONE. [Concomitant]
     Active Substance: PREDNISOLONE
  32. PROAIR HFA [Concomitant]
     Active Substance: ALBUTEROL SULFATE
  33. TIZANIDINE. [Concomitant]
     Active Substance: TIZANIDINE
  34. ZIDOVUDINE. [Concomitant]
     Active Substance: ZIDOVUDINE
  35. TRUVADA [Suspect]
     Active Substance: EMTRICITABINE\TENOFOVIR DISOPROXIL FUMARATE
     Indication: HIV INFECTION
     Dosage: UNK
     Route: 048
     Dates: start: 2011
  36. RETROVIR [Concomitant]
     Active Substance: ZIDOVUDINE
  37. ACETAMINOPHEN. [Concomitant]
     Active Substance: ACETAMINOPHEN
  38. ACYCLOVIR [ACICLOVIR SODIUM] [Concomitant]
     Active Substance: ACYCLOVIR
  39. ARNUITY ELLIPTA [Concomitant]
     Active Substance: FLUTICASONE FUROATE
  40. BACIDE [Concomitant]
  41. CLONIDIN [Concomitant]
     Active Substance: CLONIDINE
  42. DIPHENOXYLATE [Concomitant]
     Active Substance: DIPHENOXYLATE
  43. DOXEPIN [Concomitant]
     Active Substance: DOXEPIN
  44. PEG 3350 [Concomitant]
     Active Substance: POLYETHYLENE GLYCOL 3350
  45. SODIUM BICARBONATE. [Concomitant]
     Active Substance: SODIUM BICARBONATE
  46. ATORVASTATIN [Concomitant]
     Active Substance: ATORVASTATIN
  47. CADUET [Concomitant]
     Active Substance: AMLODIPINE BESYLATE\ATORVASTATIN CALCIUM
  48. DOXYCYCLIN AL [DOXYCYCLINE HYCLATE] [Concomitant]
     Active Substance: DOXYCYCLINE HYCLATE
  49. FISH OIL [Concomitant]
     Active Substance: FISH OIL
  50. FLUCONAZOLE. [Concomitant]
     Active Substance: FLUCONAZOLE
  51. GOLYTELY [Concomitant]
     Active Substance: POLYETHYLENE GLYCOL 3350\POTASSIUM CHLORIDE\SODIUM BICARBONATE\SODIUM CHLORIDE\SODIUM SULFATE
  52. HYOSCYAMINE SULFATE. [Concomitant]
     Active Substance: HYOSCYAMINE SULFATE
  53. JANUVIA [Concomitant]
     Active Substance: SITAGLIPTIN PHOSPHATE
  54. KLOR?CON [Concomitant]
     Active Substance: POTASSIUM CHLORIDE
  55. NITROGLYCERIN. [Concomitant]
     Active Substance: NITROGLYCERIN
  56. NYSTATIN. [Concomitant]
     Active Substance: NYSTATIN
  57. PHOSPHA 250 NEUTRAL [Concomitant]
     Active Substance: POTASSIUM PHOSPHATE, MONOBASIC\SODIUM PHOSPHATE, DIBASIC, ANHYDROUS\SODIUM PHOSPHATE, MONOBASIC, MONOHYDRATE
  58. SORBITOL. [Concomitant]
     Active Substance: SORBITOL
  59. TOPIRAMATE. [Concomitant]
     Active Substance: TOPIRAMATE
  60. TRUVADA [Suspect]
     Active Substance: EMTRICITABINE\TENOFOVIR DISOPROXIL FUMARATE
     Dosage: UNK
     Route: 048
     Dates: start: 20120828
  61. CALCIUM + VIT D [Concomitant]
     Active Substance: CALCIUM\VITAMIN D
  62. CETIRIZINE [Concomitant]
     Active Substance: CETIRIZINE HYDROCHLORIDE
  63. CHERATUSSIN [Concomitant]
     Active Substance: AMMONIUM CHLORIDE\DEXTROMETHORPHAN\SODIUM CITRATE
  64. COLCRYS [Concomitant]
     Active Substance: COLCHICINE
  65. DILEX?G 400 [Concomitant]
     Active Substance: DYPHYLLINE\GUAIFENESIN
  66. ESOMEP [ESOMEPRAZOLE MAGNESIUM] [Concomitant]
     Active Substance: ESOMEPRAZOLE MAGNESIUM
  67. SELENIUM [Concomitant]
     Active Substance: SELENIUM
  68. HYDRALAZINE [Concomitant]
     Active Substance: HYDRALAZINE HYDROCHLORIDE
  69. LANTUS [Concomitant]
     Active Substance: INSULIN GLARGINE
  70. OMEPRAZOLE. [Concomitant]
     Active Substance: OMEPRAZOLE
  71. PROMETHAZINE [Concomitant]
     Active Substance: PROMETHAZINE HYDROCHLORIDE
  72. RANITIDINE. [Concomitant]
     Active Substance: RANITIDINE
  73. ULORIC [Concomitant]
     Active Substance: FEBUXOSTAT
  74. VIREAD [Suspect]
     Active Substance: TENOFOVIR DISOPROXIL FUMARATE
     Indication: HIV INFECTION
     Dosage: UNK
     Route: 048
     Dates: start: 2011
  75. AMOXCLAV [AMOXICILLIN TRIHYDRATE;CLAVULANATE POTASSIUM] [Concomitant]
  76. CARVEDILOL. [Concomitant]
     Active Substance: CARVEDILOL
  77. CEFDINIR. [Concomitant]
     Active Substance: CEFDINIR
  78. CLOBETASOL [Concomitant]
     Active Substance: CLOBETASOL
  79. DIOVAN HCT [Concomitant]
     Active Substance: HYDROCHLOROTHIAZIDE\VALSARTAN
  80. MAG OXIDE [Concomitant]
     Active Substance: MAGNESIUM OXIDE
  81. NEOMYCIN;POLYMYXIN [Concomitant]
  82. TRAZODONE [Concomitant]
     Active Substance: TRAZODONE HYDROCHLORIDE
  83. TRIAMCIN. ACETON.ACET., MICON.NIT.,NEOM.SULF. [Concomitant]
  84. ALLOPURINOL. [Concomitant]
     Active Substance: ALLOPURINOL
  85. METHYLPREDNISOLONE. [Concomitant]
     Active Substance: METHYLPREDNISOLONE
  86. METOCLOPRAMIDE. [Concomitant]
     Active Substance: METOCLOPRAMIDE
  87. MEXILETINE [Concomitant]
     Active Substance: MEXILETINE
  88. POLY HIST CB [Concomitant]
     Active Substance: GUAIFENESIN\PENTOXYVERINE CITRATE
  89. PRANDIN E2 [Concomitant]
  90. PRAVASTATIN. [Concomitant]
     Active Substance: PRAVASTATIN
  91. SILENOR [Concomitant]
     Active Substance: DOXEPIN HYDROCHLORIDE
  92. TEMAZEPAM. [Concomitant]
     Active Substance: TEMAZEPAM
  93. TOBRAMYCIN. [Concomitant]
     Active Substance: TOBRAMYCIN
  94. ZOLPIDEM [Concomitant]
     Active Substance: ZOLPIDEM TARTRATE

REACTIONS (12)
  - Acute kidney injury [Not Recovered/Not Resolved]
  - Anhedonia [Not Recovered/Not Resolved]
  - Pneumonia [Recovered/Resolved]
  - Nephropathy [Not Recovered/Not Resolved]
  - Bronchitis [Recovered/Resolved]
  - Hyperparathyroidism secondary [Not Recovered/Not Resolved]
  - Anaemia [Not Recovered/Not Resolved]
  - End stage renal disease [Not Recovered/Not Resolved]
  - Pain [Not Recovered/Not Resolved]
  - Anxiety [Not Recovered/Not Resolved]
  - Chronic kidney disease [Not Recovered/Not Resolved]
  - Emotional distress [Not Recovered/Not Resolved]

NARRATIVE: CASE EVENT DATE: 2011
